FAERS Safety Report 5829595-8 (Version None)
Quarter: 2008Q3

REPORT INFORMATION
  Report Type: 
  Country: None (occurrence: None)
  Receive Date: 20080731
  Receipt Date: 20080721
  Transmission Date: 20090109
  Serious: Yes (Life-Threatening, Hospitalization, Other)
  Sender: FDA-Public Use
  Company Number: GB-PFIZER INC-2008061354

PATIENT
  Age: 87 Year
  Sex: Female
  Weight: 60 kg

DRUGS (9)
  1. ARTHROTEC [Suspect]
     Dates: start: 20080609, end: 20080628
  2. ERYTHROMYCIN [Suspect]
     Indication: SKIN ULCER
  3. AMITRIPTYLINE HYDROCHLORIDE [Suspect]
     Dates: start: 20080620, end: 20080628
  4. NITROFURANTOIN [Suspect]
  5. ACETYLSALICYLIC ACID SRT [Concomitant]
  6. BETAMETHASONE VALERATE [Concomitant]
  7. ACETAMINOPHEN W/ CODEINE [Concomitant]
  8. FUROSEMIDE [Concomitant]
  9. LEVOTHYROXINE SODIUM [Concomitant]

REACTIONS (1)
  - THROMBOCYTOPENIC PURPURA [None]
